FAERS Safety Report 21563027 (Version 1)
Quarter: 2022Q4

REPORT INFORMATION
  Report Type: Spontaneous
  Country: US (occurrence: US)
  Receive Date: 20221107
  Receipt Date: 20221107
  Transmission Date: 20230113
  Serious: No
  Sender: FDA-Public Use
  Company Number: US-SA-SAC20221029000236

PATIENT
  Age: 56 Year
  Sex: Male
  Weight: 77.1 kg

DRUGS (17)
  1. DUPIXENT [Suspect]
     Active Substance: DUPILUMAB
     Indication: Eczema
     Dosage: UNK
     Route: 065
     Dates: start: 20211101, end: 20220506
  2. PAXLOVID [Suspect]
     Active Substance: NIRMATRELVIR\RITONAVIR
     Indication: Lyme disease
     Dosage: UNK
     Dates: start: 20220701
  3. METHSCOPOLAMINE BROMIDE [Concomitant]
     Active Substance: METHSCOPOLAMINE BROMIDE
     Dosage: UNK
  4. ATORVASTATIN [Concomitant]
     Active Substance: ATORVASTATIN
     Dosage: UNK
  5. OLMESARTAN [Concomitant]
     Active Substance: OLMESARTAN
     Dosage: UNK
  6. LEVOTHYROXINE [Concomitant]
     Active Substance: LEVOTHYROXINE
     Dosage: UNK
  7. AZITHROMYCIN [Concomitant]
     Active Substance: AZITHROMYCIN
     Dosage: 250 MG, BID
  8. AZITHROMYCIN [Concomitant]
     Active Substance: AZITHROMYCIN
     Dosage: 500 MG, QD
  9. CEFTRIAXONE [Concomitant]
     Active Substance: CEFTRIAXONE
     Dosage: 2000MG A DAY
  10. CEFUROXIME AXETIL [Concomitant]
     Active Substance: CEFUROXIME AXETIL
     Dosage: 10- 250MG TABLETS A DAY
  11. NAPROSYN [Concomitant]
     Active Substance: NAPROXEN
     Indication: Myalgia
  12. QUESTRAN [Concomitant]
     Active Substance: CHOLESTYRAMINE
     Dosage: UNK
     Dates: start: 1983
  13. COVID-19 VACCINE [Concomitant]
     Dosage: UNK
     Dates: start: 202103
  14. COVID-19 VACCINE [Concomitant]
     Dosage: UNK
     Dates: start: 202104
  15. COVID-19 VACCINE [Concomitant]
     Dosage: UNK
     Dates: start: 202111
  16. DIFLUCAN [Concomitant]
     Active Substance: FLUCONAZOLE
     Dosage: UNK
     Dates: start: 2021
  17. AMOXICILLIN [Concomitant]
     Active Substance: AMOXICILLIN
     Dosage: 875 MG, Q3D
     Dates: start: 20221003

REACTIONS (8)
  - COVID-19 [Recovered/Resolved]
  - Rebound eczema [Unknown]
  - Pain in extremity [Unknown]
  - Limb discomfort [Unknown]
  - Dysgeusia [Unknown]
  - Nasopharyngitis [Unknown]
  - Eczema [Unknown]
  - Drug ineffective [Unknown]

NARRATIVE: CASE EVENT DATE: 20211229
